FAERS Safety Report 11592283 (Version 1)
Quarter: 2015Q4

REPORT INFORMATION
  Report Type: Spontaneous
  Country: AU (occurrence: AU)
  Receive Date: 20151005
  Receipt Date: 20151005
  Transmission Date: 20160304
  Serious: Yes (Other)
  Sender: FDA-Public Use
  Company Number: AU-BEH-2015054498

PATIENT
  Age: 42 Year
  Sex: Female

DRUGS (4)
  1. PARACETAMOL [Concomitant]
     Active Substance: ACETAMINOPHEN
     Route: 048
  2. OXYCONTIN [Concomitant]
     Active Substance: OXYCODONE HYDROCHLORIDE
     Route: 048
  3. RHOPHYLAC [Suspect]
     Active Substance: HUMAN RHO(D) IMMUNE GLOBULIN
     Indication: PROPHYLAXIS
     Dosage: 8 X 1500 UNITS STAT. PRODUCT NUMBER 004, RHOPHYLAC 300 MCG LAB NUMBER 150828707.
     Route: 042
     Dates: start: 20151001
  4. RHOPHYLAC [Suspect]
     Active Substance: HUMAN RHO(D) IMMUNE GLOBULIN
     Indication: FOETAL-MATERNAL HAEMORRHAGE
     Dosage: 8 X 1500 UNITS STAT. PRODUCT NUMBER 004, RHOPHYLAC 300 MCG LAB NUMBER 150828707.
     Route: 042
     Dates: start: 20151001

REACTIONS (6)
  - Chills [Recovered/Resolved]
  - Tachypnoea [Recovered/Resolved]
  - Hypertension [Recovered/Resolved]
  - Body temperature increased [Recovered/Resolved]
  - Cyanosis central [Recovered/Resolved]
  - Tachycardia [Recovered/Resolved]

NARRATIVE: CASE EVENT DATE: 20151001
